FAERS Safety Report 21967429 (Version 9)
Quarter: 2024Q2

REPORT INFORMATION
  Report Type: Spontaneous
  Country: CA (occurrence: CA)
  Receive Date: 20230208
  Receipt Date: 20240502
  Transmission Date: 20240715
  Serious: Yes (Hospitalization, Other)
  Sender: FDA-Public Use
  Company Number: CA-PFIZER INC-202101780915

PATIENT
  Age: 59 Year
  Sex: Female

DRUGS (12)
  1. XELJANZ [Suspect]
     Active Substance: TOFACITINIB CITRATE
     Indication: Psoriatic arthropathy
     Dosage: 5 MG, 2X/DAY
     Route: 048
     Dates: start: 20190801, end: 2019
  2. XELJANZ [Suspect]
     Active Substance: TOFACITINIB CITRATE
     Dosage: 5 MG, DAILY (ALTERNATING 5MG OD AND 5MG BID)
     Route: 048
     Dates: start: 2019, end: 202004
  3. XELJANZ [Suspect]
     Active Substance: TOFACITINIB CITRATE
     Dosage: 5 MG, 2X/DAY (ALTERNATING 5MG OD AND 5MG BID)
     Route: 048
     Dates: start: 2019, end: 202004
  4. XELJANZ [Suspect]
     Active Substance: TOFACITINIB CITRATE
     Dosage: 5 MG, DAILY (ALTERNATING 5MG OD AND 5MG BID)
     Route: 048
     Dates: start: 202004, end: 202011
  5. XELJANZ [Suspect]
     Active Substance: TOFACITINIB CITRATE
     Dosage: 5 MG, DAILY (ALTERNATING 5MG OD AND 5MG BID)
     Route: 048
     Dates: start: 202004, end: 202011
  6. XELJANZ [Suspect]
     Active Substance: TOFACITINIB CITRATE
     Dosage: 5 MG, DAILY  (ALTERNATING 5MG OD AND 5MG BID)
     Route: 048
     Dates: start: 202011, end: 2020
  7. XELJANZ [Suspect]
     Active Substance: TOFACITINIB CITRATE
     Dosage: 5 MG, 2X/DAY (ALTERNATING 5MG OD AND 5MG BID)
     Route: 048
     Dates: start: 202011, end: 2020
  8. XELJANZ [Suspect]
     Active Substance: TOFACITINIB CITRATE
     Dosage: 5 MG, 2X/DAY
     Route: 048
     Dates: start: 2020, end: 202212
  9. XELJANZ [Suspect]
     Active Substance: TOFACITINIB CITRATE
     Dosage: 5 MG, 2X/DAY
     Route: 048
     Dates: start: 20230131
  10. XELJANZ [Suspect]
     Active Substance: TOFACITINIB CITRATE
     Dosage: 5 MG, 1X/DAY
     Route: 048
     Dates: start: 202304
  11. XELJANZ [Suspect]
     Active Substance: TOFACITINIB CITRATE
     Dosage: 5 MG, 2X/DAY
     Route: 048
     Dates: start: 20230821
  12. XELJANZ [Suspect]
     Active Substance: TOFACITINIB CITRATE
     Dosage: 5 MG, 1X/DAY
     Route: 048

REACTIONS (13)
  - Abdominal injury [Recovered/Resolved]
  - Pneumonia [Unknown]
  - Sinusitis [Recovering/Resolving]
  - Impaired healing [Unknown]
  - COVID-19 [Recovered/Resolved]
  - Illness [Unknown]
  - Fungal infection [Recovered/Resolved]
  - Cystitis [Recovered/Resolved]
  - Stress [Unknown]
  - Oral candidiasis [Unknown]
  - Cough [Unknown]
  - Condition aggravated [Unknown]
  - Incorrect dose administered [Unknown]

NARRATIVE: CASE EVENT DATE: 20220101
